FAERS Safety Report 5804083-3 (Version None)
Quarter: 2008Q3

REPORT INFORMATION
  Report Type: 
  Country: None (occurrence: None)
  Receive Date: 20080709
  Receipt Date: 20080702
  Transmission Date: 20090109
  Serious: Yes (Other)
  Sender: FDA-Public Use
  Company Number: US-BAYER-200827225NA

PATIENT
  Sex: Female

DRUGS (1)
  1. MIRENA [Suspect]
     Indication: DRUG USE FOR UNKNOWN INDICATION
     Route: 015
     Dates: start: 20070918, end: 20080608

REACTIONS (3)
  - ANTEPARTUM HAEMORRHAGE [None]
  - MALAISE [None]
  - PREGNANCY WITH CONTRACEPTIVE DEVICE [None]
